FAERS Safety Report 16641956 (Version 1)
Quarter: 2019Q3

REPORT INFORMATION
  Report Type: Spontaneous
  Country: US (occurrence: US)
  Receive Date: 20190727
  Receipt Date: 20190727
  Transmission Date: 20191004
  Serious: Yes (Disabling)
  Sender: FDA-Public Use
  Company Number: None

PATIENT
  Age: 8 Year
  Sex: Male
  Weight: 27 kg

DRUGS (2)
  1. GENERIC WALMART MULTIVITAMIN GUMMIES [Concomitant]
  2. MONTELUKAST SODIUM CHEWABLE TABLETS USP 5 MG [Suspect]
     Active Substance: MONTELUKAST SODIUM
     Indication: ASTHMA EXERCISE INDUCED
     Dosage: ?          QUANTITY:1 TABLET(S);?
     Route: 048
     Dates: start: 20190418, end: 20190705

REACTIONS (28)
  - Suicidal ideation [None]
  - Abdominal pain upper [None]
  - Ear pain [None]
  - Myalgia [None]
  - Fatigue [None]
  - Injury [None]
  - Vision blurred [None]
  - Chest discomfort [None]
  - Anxiety [None]
  - Chest pain [None]
  - Headache [None]
  - Disorientation [None]
  - Neuropsychiatric symptoms [None]
  - Arthralgia [None]
  - Eye pain [None]
  - Time perception altered [None]
  - Hallucination, auditory [None]
  - Memory impairment [None]
  - Restlessness [None]
  - Insomnia [None]
  - Photopsia [None]
  - Fear of death [None]
  - Nervousness [None]
  - Withdrawal syndrome [None]
  - Disturbance in attention [None]
  - Nightmare [None]
  - Obsessive-compulsive disorder [None]
  - Thinking abnormal [None]

NARRATIVE: CASE EVENT DATE: 20190629
